FAERS Safety Report 24125263 (Version 4)
Quarter: 2024Q4

REPORT INFORMATION
  Report Type: Report from Study
  Country: US (occurrence: US)
  Receive Date: 20240723
  Receipt Date: 20241009
  Transmission Date: 20250115
  Serious: Yes (Other)
  Sender: CSL BEHRING
  Company Number: US-BEH-2024175946

PATIENT
  Age: 85 Year
  Sex: Female
  Weight: 79.4 kg

DRUGS (19)
  1. HIZENTRA [Suspect]
     Active Substance: HUMAN IMMUNOGLOBULIN G
     Indication: Immunodeficiency common variable
     Dosage: 8 G, QW
     Route: 058
  2. HIZENTRA [Suspect]
     Active Substance: HUMAN IMMUNOGLOBULIN G
     Dosage: STRENGTH:2
     Route: 065
  3. HIZENTRA [Suspect]
     Active Substance: HUMAN IMMUNOGLOBULIN G
     Dosage: 8 G, QW
     Route: 058
  4. BREO ELLIPTA [Concomitant]
     Active Substance: FLUTICASONE FUROATE\VILANTEROL TRIFENATATE
  5. CARAFATE [Concomitant]
     Active Substance: SUCRALFATE
  6. COLACE [Concomitant]
     Active Substance: DOCUSATE SODIUM
  7. FLONASE ALLERGY RELIEF [Concomitant]
     Active Substance: FLUTICASONE PROPIONATE
  8. GABAPENTIN [Concomitant]
     Active Substance: GABAPENTIN
  9. GABAPENTIN [Concomitant]
     Active Substance: GABAPENTIN
  10. LASIX [Concomitant]
     Active Substance: FUROSEMIDE
  11. LOSARTAN [Concomitant]
     Active Substance: LOSARTAN
  12. ONDANSETRON [Concomitant]
     Active Substance: ONDANSETRON
  13. RESTASIS [Concomitant]
     Active Substance: CYCLOSPORINE
  14. TYLENOL 8HR [Concomitant]
     Active Substance: ACETAMINOPHEN
     Indication: Arthritis
  15. VOLTAREN [Concomitant]
     Active Substance: DICLOFENAC SODIUM
  16. ZYRTEC [Concomitant]
     Active Substance: CETIRIZINE HYDROCHLORIDE
  17. SINGULAIR [Concomitant]
     Active Substance: MONTELUKAST SODIUM
  18. METOPROLOL SUCCINATE [Concomitant]
     Active Substance: METOPROLOL SUCCINATE
     Dosage: 2 100 MG
  19. DEXILANT [Concomitant]
     Active Substance: DEXLANSOPRAZOLE

REACTIONS (9)
  - Illness [Unknown]
  - Malaise [Unknown]
  - Sinusitis [Unknown]
  - Depression [Unknown]
  - Initial insomnia [Unknown]
  - Somnolence [Unknown]
  - Diarrhoea [Unknown]
  - Arthritis [Unknown]
  - Product dose omission issue [Unknown]

NARRATIVE: CASE EVENT DATE: 20240701
